FAERS Safety Report 7435830-5 (Version None)
Quarter: 2011Q2

REPORT INFORMATION
  Report Type: 
  Country: None (occurrence: None)
  Receive Date: 20110418
  Receipt Date: 20110401
  Transmission Date: 20111010
  Serious: Yes (Other)
  Sender: FDA-Public Use
  Company Number: AE 2011-150

PATIENT
  Age: 34 Year
  Sex: Male

DRUGS (1)
  1. CLOZAPINE [Suspect]

REACTIONS (4)
  - GASTROINTESTINAL HYPOMOTILITY [None]
  - CONSTIPATION [None]
  - NECROTISING COLITIS [None]
  - FAECALOMA [None]
